FAERS Safety Report 25635769 (Version 1)
Quarter: 2025Q3

REPORT INFORMATION
  Report Type: Spontaneous
  Country: US (occurrence: US)
  Receive Date: 20250802
  Receipt Date: 20250802
  Transmission Date: 20251021
  Serious: No
  Sender: SERVIER
  Company Number: US-SERVIER-S25007957

PATIENT

DRUGS (1)
  1. VORANIGO [Suspect]
     Active Substance: VORASIDENIB
     Indication: Brain cancer metastatic
     Dosage: 40 MG, QD
     Route: 048
     Dates: start: 202409

REACTIONS (1)
  - Fatigue [Unknown]

NARRATIVE: CASE EVENT DATE: 20240101
